FAERS Safety Report 24168600 (Version 3)
Quarter: 2024Q4

REPORT INFORMATION
  Report Type: Spontaneous
  Country: JP (occurrence: JP)
  Receive Date: 20240802
  Receipt Date: 20241226
  Transmission Date: 20250115
  Serious: Yes (Death, Life-Threatening, Other)
  Sender: ALEXION PHARMACEUTICALS
  Company Number: 2024A173328

PATIENT
  Age: 78 Year

DRUGS (5)
  1. IMFINZI [Suspect]
     Active Substance: DURVALUMAB
     Indication: Bile duct cancer
     Dosage: 1500 MILLIGRAM, UNK
  2. GEMCITABINE HYDROCHLORIDE [Concomitant]
     Active Substance: GEMCITABINE HYDROCHLORIDE
     Indication: Bile duct cancer
     Dosage: DOSE UNKNOWN
     Route: 065
  3. GEMCITABINE HYDROCHLORIDE [Concomitant]
     Active Substance: GEMCITABINE HYDROCHLORIDE
     Dosage: DOSE UNKNOWN
     Route: 065
  4. CISPLATIN [Concomitant]
     Active Substance: CISPLATIN
     Indication: Bile duct cancer
     Dosage: DOSE UNKNOWN
     Route: 065
  5. CISPLATIN [Concomitant]
     Active Substance: CISPLATIN
     Dosage: DOSE UNKNOWN
     Route: 065

REACTIONS (1)
  - Liver abscess [Fatal]
